FAERS Safety Report 22596108 (Version 1)
Quarter: 2023Q2

REPORT INFORMATION
  Report Type: Spontaneous
  Country: JP (occurrence: JP)
  Receive Date: 20230613
  Receipt Date: 20230613
  Transmission Date: 20230722
  Serious: Yes (Hospitalization, Other)
  Sender: FDA-Public Use
  Company Number: JP-UCBJ-CD202306331UCBPHAPROD

PATIENT
  Age: 9 Decade
  Sex: Female

DRUGS (1)
  1. VIMPAT [Suspect]
     Active Substance: LACOSAMIDE
     Indication: Epilepsy
     Dosage: 150 MILLIGRAM, ONCE DAILY (QD)
     Route: 048

REACTIONS (3)
  - Loss of consciousness [Recovering/Resolving]
  - Bradycardia [Recovered/Resolved]
  - Cardiac pacemaker insertion [Unknown]
